FAERS Safety Report 6106709-6 (Version None)
Quarter: 2009Q1

REPORT INFORMATION
  Report Type: 
  Country: None (occurrence: None)
  Receive Date: 20090305
  Receipt Date: 20090226
  Transmission Date: 20090719
  Serious: Yes (Other)
  Sender: FDA-Public Use
  Company Number: OSCN-PR-0902S-0119

PATIENT
  Age: 57 Year
  Sex: Female

DRUGS (2)
  1. OMNISCAN [Suspect]
     Indication: DRUG USE FOR UNKNOWN INDICATION
  2. GADOPENTETATE DIMEGLUMINE [Concomitant]

REACTIONS (1)
  - NEPHROGENIC SYSTEMIC FIBROSIS [None]
